FAERS Safety Report 14718784 (Version 2)
Quarter: 2018Q3

REPORT INFORMATION
  Report Type: Report from Study
  Country: US (occurrence: US)
  Receive Date: 20180405
  Receipt Date: 20180713
  Transmission Date: 20181010
  Serious: Yes (Hospitalization, Other)
  Sender: FDA-Public Use
  Company Number: US-ALEXION PHARMACEUTICALS INC.-A201803661

PATIENT
  Age: 68 Year
  Sex: Female
  Weight: 41.88 kg

DRUGS (10)
  1. TRESIBA [Concomitant]
     Active Substance: INSULIN DEGLUDEC
     Indication: PRODUCT USED FOR UNKNOWN INDICATION
     Dosage: UNK
     Route: 065
  2. SOLIRIS [Suspect]
     Active Substance: ECULIZUMAB
     Indication: PAROXYSMAL NOCTURNAL HAEMOGLOBINURIA
     Dosage: 600 MG, QW
     Route: 065
     Dates: start: 2007
  3. SOLIRIS [Suspect]
     Active Substance: ECULIZUMAB
     Dosage: 600 MG, QW
     Route: 065
     Dates: start: 20180322
  4. LEVOTHYROXINE. [Concomitant]
     Active Substance: LEVOTHYROXINE
     Indication: PRODUCT USED FOR UNKNOWN INDICATION
     Dosage: UNK
     Route: 065
  5. METOPROLOL TARTRATE. [Concomitant]
     Active Substance: METOPROLOL TARTRATE
     Indication: PRODUCT USED FOR UNKNOWN INDICATION
     Dosage: UNK
     Route: 065
  6. SOLIRIS [Suspect]
     Active Substance: ECULIZUMAB
     Dosage: 900 MG, Q2W
     Route: 065
     Dates: end: 20171222
  7. ATORVASTATIN CALCIUM. [Concomitant]
     Active Substance: ATORVASTATIN CALCIUM
     Indication: PRODUCT USED FOR UNKNOWN INDICATION
     Dosage: UNK
     Route: 065
  8. FOLIC ACID. [Concomitant]
     Active Substance: FOLIC ACID
     Indication: PRODUCT USED FOR UNKNOWN INDICATION
     Dosage: 800 ?G, QD
     Route: 048
     Dates: start: 20180206
  9. NORVASC [Concomitant]
     Active Substance: AMLODIPINE BESYLATE
     Indication: PRODUCT USED FOR UNKNOWN INDICATION
     Dosage: UNK
     Route: 065
  10. EXJADE [Concomitant]
     Active Substance: DEFERASIROX
     Indication: IRON OVERLOAD
     Dosage: UNK
     Route: 065

REACTIONS (37)
  - Haemolysis [Recovering/Resolving]
  - White blood cell count decreased [Unknown]
  - Platelet count decreased [Unknown]
  - Neutrophil count decreased [Unknown]
  - Lymphocyte count increased [Recovered/Resolved]
  - Monocyte count increased [Recovered/Resolved]
  - Underweight [Unknown]
  - Fatigue [Unknown]
  - Asthenia [Unknown]
  - Leukopenia [Not Recovered/Not Resolved]
  - Chest pain [Recovered/Resolved]
  - Red blood cell count decreased [Unknown]
  - Mean cell haemoglobin increased [Recovered/Resolved]
  - Aspartate aminotransferase increased [Unknown]
  - Dyspnoea exertional [Recovered/Resolved]
  - Dyspnoea [Recovered/Resolved]
  - Blood pressure systolic increased [Unknown]
  - Blood potassium decreased [Unknown]
  - Red blood cell schistocytes present [Unknown]
  - Inappropriate schedule of drug administration [Recovered/Resolved]
  - Glomerular filtration rate decreased [Unknown]
  - Blood bilirubin increased [Unknown]
  - Reticulocyte count increased [Unknown]
  - Anisocytosis [Unknown]
  - Blood sodium decreased [Unknown]
  - Blood glucose increased [Unknown]
  - Red cell distribution width increased [Unknown]
  - Blood creatinine increased [Unknown]
  - Thrombocytopenia [Not Recovered/Not Resolved]
  - Blood chloride decreased [Recovered/Resolved]
  - Blood urea increased [Recovered/Resolved]
  - Cough [Unknown]
  - Jaundice [Recovered/Resolved]
  - Haematuria [Recovered/Resolved]
  - Haematocrit decreased [Recovered/Resolved]
  - Haemoglobin decreased [Recovering/Resolving]
  - Creatinine renal clearance increased [Unknown]

NARRATIVE: CASE EVENT DATE: 20171114
